FAERS Safety Report 23725221 (Version 2)
Quarter: 2024Q2

REPORT INFORMATION
  Report Type: Spontaneous
  Country: JP (occurrence: JP)
  Receive Date: 20240410
  Receipt Date: 20240520
  Transmission Date: 20240716
  Serious: Yes (Hospitalization, Other)
  Sender: FDA-Public Use
  Company Number: JP-KYOWAKIRIN-2023KK015022

PATIENT
  Age: 67 Year
  Sex: Female

DRUGS (5)
  1. PEGFILGRASTIM [Suspect]
     Active Substance: PEGFILGRASTIM
     Indication: Colony stimulating factor therapy
     Dosage: 3.6 MILLIGRAM, QD
     Route: 058
     Dates: start: 20211003, end: 20211003
  2. EPIRUBICIN HYDROCHLORIDE [Concomitant]
     Active Substance: EPIRUBICIN HYDROCHLORIDE
     Indication: Breast cancer
     Dosage: 150 MG, QD
     Route: 042
     Dates: start: 20210930
  3. CYCLOPHOSPHAMIDE [Concomitant]
     Active Substance: CYCLOPHOSPHAMIDE
     Indication: Breast cancer
     Dosage: 1010 MG, QD
     Route: 042
     Dates: start: 20210930
  4. DECADRON [Concomitant]
     Active Substance: DEXAMETHASONE
     Indication: Breast cancer
     Dosage: 2 DF, QD,CHEMOTHERAPY 2ND, 3RD, 4THIN THE MORNING.
     Route: 065
     Dates: start: 20211001, end: 20211003
  5. CARTEOLOL HYDROCHLORIDE [Concomitant]
     Active Substance: CARTEOLOL HYDROCHLORIDE
     Indication: Product used for unknown indication
     Dosage: ONCE A DROP, BID
     Route: 047
     Dates: start: 20210929, end: 20211012

REACTIONS (2)
  - Aortitis [Recovered/Resolved]
  - Renal tubular disorder [Recovered/Resolved]

NARRATIVE: CASE EVENT DATE: 20211010
